FAERS Safety Report 9267236 (Version 3)
Quarter: 2013Q3

REPORT INFORMATION
  Report Type: Spontaneous
  Country: GB (occurrence: GB)
  Receive Date: 20130502
  Receipt Date: 20130715
  Transmission Date: 20140515
  Serious: Yes (Other)
  Sender: FDA-Public Use
  Company Number: PHFR2013GB002495

PATIENT
  Age: 42 Year
  Sex: Male

DRUGS (22)
  1. CLOZARIL [Suspect]
     Indication: SCHIZOPHRENIA
     Dosage: 100 MG TO 125 MG DAILY
     Route: 048
     Dates: start: 20130213, end: 20130417
  2. ASPIRIN [Concomitant]
     Indication: CARDIAC DISORDER
     Dosage: 75 MG, UNK
     Route: 048
     Dates: start: 20110910
  3. CLOPIDOGREL [Concomitant]
     Indication: BLOOD CHOLESTEROL INCREASED
     Dosage: 75 MG, UNK
     Route: 048
     Dates: start: 20110922
  4. SODIUM FLUORIDE [Concomitant]
     Dosage: UNK UKN, UNK
     Route: 061
     Dates: start: 20120328
  5. BISOPROLOL [Concomitant]
     Indication: CARDIAC DISORDER
     Dosage: 5 MG, UNK
     Route: 048
     Dates: start: 20121117
  6. SIMVASTATIN [Concomitant]
     Indication: BLOOD CHOLESTEROL INCREASED
     Dosage: 20 MG, UNK
     Route: 048
     Dates: start: 20130110
  7. SENNA [Concomitant]
     Indication: CONSTIPATION
     Dosage: 15 MG, UNK
     Route: 048
     Dates: start: 20130125
  8. LANSOPRAZOLE [Concomitant]
     Indication: DYSPEPSIA
     Dosage: 30 MG, UNK
     Route: 048
     Dates: start: 20130221
  9. RAMIPRIL [Concomitant]
     Indication: CARDIAC DISORDER
     Dosage: 6.25 MG, UNK
     Route: 048
     Dates: start: 20130416
  10. LORAZEPAM [Concomitant]
     Indication: AGITATION
     Dosage: 1 MG, UNK
     Route: 048
  11. LORAZEPAM [Concomitant]
     Dosage: 2 MG, UNK
     Route: 048
  12. LORAZEPAM [Concomitant]
     Dosage: 4 MG, UNK
     Route: 048
     Dates: start: 20130419
  13. GTN [Concomitant]
     Indication: CHEST PAIN
     Dosage: 400 UG, UNK
     Dates: start: 20130420
  14. GTN [Concomitant]
     Dosage: 400 MG, UNK
     Dates: start: 20130516
  15. GTN [Concomitant]
     Dosage: 400 MG, UNK
     Dates: start: 20130521
  16. PEPTAC [Concomitant]
     Dosage: 10 ML
     Route: 048
  17. PEPTAC [Concomitant]
     Dosage: 20 ML
     Route: 048
  18. PEPTAC [Concomitant]
     Dosage: 80 ML
     Route: 048
  19. PARACETAMOL [Concomitant]
     Indication: HEADACHE
     Dosage: UNK G, UNK
     Route: 048
  20. ORFENADRINE HCL [Concomitant]
     Indication: PSYCHOTIC DISORDER
     Dosage: 100 MG, UNK
     Route: 048
  21. ORFENADRINE HCL [Concomitant]
     Dosage: 300 MG, UNK
     Route: 048
  22. CM PROMETHAZINE [Concomitant]
     Dosage: UNK

REACTIONS (12)
  - Cardiac disorder [Unknown]
  - Angiopathy [Unknown]
  - Left ventricular dysfunction [Unknown]
  - Electrocardiogram QT interval abnormal [Recovered/Resolved]
  - Mental impairment [Recovering/Resolving]
  - General physical health deterioration [Recovered/Resolved]
  - Bradycardia [Recovered/Resolved]
  - Tachycardia [Recovered/Resolved]
  - Hypertension [Recovered/Resolved]
  - Hypotension [Recovered/Resolved]
  - Dizziness [Recovered/Resolved]
  - Antipsychotic drug level decreased [Not Recovered/Not Resolved]
